FAERS Safety Report 16202306 (Version 3)
Quarter: 2020Q2

REPORT INFORMATION
  Report Type: Spontaneous
  Country: US (occurrence: US)
  Receive Date: 20190416
  Receipt Date: 20200507
  Transmission Date: 20200713
  Serious: Yes (Other)
  Sender: FDA-Public Use
  Company Number: US-TORRENT-00007995

PATIENT
  Sex: Female
  Weight: 136 kg

DRUGS (2)
  1. LOSARTAN POTASSIUM. [Suspect]
     Active Substance: LOSARTAN POTASSIUM
     Indication: HYPERTENSION
     Route: 048
     Dates: start: 2009
  2. LOSARTAN POTASSIUM TABLETS [Suspect]
     Active Substance: LOSARTAN POTASSIUM
     Indication: HYPERTENSION
     Route: 048

REACTIONS (3)
  - Breast cancer metastatic [Unknown]
  - Benign neoplasm [Unknown]
  - Cancer surgery [Unknown]

NARRATIVE: CASE EVENT DATE: 2013
